FAERS Safety Report 6344021-0 (Version None)
Quarter: 2009Q3

REPORT INFORMATION
  Report Type: 
  Country: None (occurrence: None)
  Receive Date: 20090908
  Receipt Date: 20090826
  Transmission Date: 20100115
  Serious: Yes (Hospitalization)
  Sender: FDA-Public Use
  Company Number: JP-PFIZER INC-2009263735

PATIENT
  Age: 79 Year

DRUGS (2)
  1. LIPITOR [Suspect]
     Dosage: 5 MG PER DAY
     Route: 048
  2. ANAFRANIL [Suspect]
     Dosage: 10 MG PER DAY
     Route: 048

REACTIONS (2)
  - FRACTURE [None]
  - THIRST [None]
